FAERS Safety Report 6287533-0 (Version None)
Quarter: 2009Q3

REPORT INFORMATION
  Report Type: 
  Country: None (occurrence: None)
  Receive Date: 20090727
  Receipt Date: 20090715
  Transmission Date: 20100115
  Serious: Yes (Other)
  Sender: FDA-Public Use
  Company Number: 09-001153

PATIENT
  Age: 42 Year
  Sex: Female

DRUGS (10)
  1. PHENAZOPYRIDINE HCL TAB [Suspect]
  2. IMIPRAMINE [Concomitant]
  3. MIDODRINE HYDROCHLORIDE [Concomitant]
  4. TAMOXIFEN CITRATE [Concomitant]
  5. PENTOSAN POLYSULFATE (PENTOSAN POLYSULFATE) [Concomitant]
  6. HYDROXYZINE [Concomitant]
  7. PHENAZOPYRIDINE (PHENAZOPYRIDINE) [Concomitant]
  8. ESCITALOPRAM [Concomitant]
  9. PENTOXIFYLLINE [Concomitant]
  10. ESOMEPRAZOLE MAGNESIUM [Concomitant]

REACTIONS (3)
  - CYANOSIS [None]
  - DYSPNOEA EXERTIONAL [None]
  - SULPHAEMOGLOBINAEMIA [None]
